FAERS Safety Report 4601736-X (Version None)
Quarter: 2005Q1

REPORT INFORMATION
  Report Type: 
  Country: None (occurrence: None)
  Receive Date: 20050131
  Receipt Date: 20041222
  Transmission Date: 20050727
  Serious: No
  Sender: FDA-Public Use
  Company Number: 200419767US

PATIENT
  Age: 51 Year
  Sex: Female
  Weight: 50 kg

DRUGS (2)
  1. KETEK [Suspect]
     Indication: SINUSITIS
     Dosage: QD PO
     Route: 048
     Dates: start: 20041218, end: 20041220
  2. PREVACID [Concomitant]

REACTIONS (4)
  - DIZZINESS [None]
  - NAUSEA [None]
  - VISION BLURRED [None]
  - VISUAL BRIGHTNESS [None]
